FAERS Safety Report 14944632 (Version 2)
Quarter: 2018Q2

REPORT INFORMATION
  Report Type: Spontaneous
  Country: JP (occurrence: JP)
  Receive Date: 20180529
  Receipt Date: 20180620
  Transmission Date: 20180711
  Serious: Yes (Other)
  Sender: FDA-Public Use
  Company Number: JP-UCBSA-2018023706

PATIENT
  Age: 59 Year
  Sex: Female

DRUGS (2)
  1. XYZAL [Suspect]
     Active Substance: LEVOCETIRIZINE DIHYDROCHLORIDE
     Indication: SINUSITIS
     Dosage: 5 MG, QD
     Route: 048
  2. XYZAL [Suspect]
     Active Substance: LEVOCETIRIZINE DIHYDROCHLORIDE
     Indication: OFF LABEL USE

REACTIONS (5)
  - Off label use [Unknown]
  - Nail growth abnormal [Unknown]
  - Nail discolouration [Unknown]
  - Pseudomonas infection [Unknown]
  - Nail candida [Unknown]
